FAERS Safety Report 10653264 (Version 2)
Quarter: 2014Q4

REPORT INFORMATION
  Report Type: Spontaneous
  Country: GR (occurrence: GR)
  Receive Date: 20141215
  Receipt Date: 20141216
  Transmission Date: 20150529
  Serious: Yes (Hospitalization)
  Sender: FDA-Public Use
  Company Number: GR-009507513-1412GRC004989

PATIENT
  Age: 24 Year
  Sex: Female
  Weight: 80 kg

DRUGS (2)
  1. FOLLITROPIN ALFA [Suspect]
     Active Substance: FOLLITROPIN
     Indication: OVULATION INDUCTION
  2. GONADOTROPIN, CHORIONIC [Suspect]
     Active Substance: CHORIOGONADOTROPIN ALFA
     Indication: OVULATION INDUCTION
     Dosage: UNK

REACTIONS (1)
  - Ovarian hyperstimulation syndrome [Recovered/Resolved]
